FAERS Safety Report 21330465 (Version 2)
Quarter: 2022Q3

REPORT INFORMATION
  Report Type: Spontaneous
  Country: GB (occurrence: GB)
  Receive Date: 20220913
  Receipt Date: 20220924
  Transmission Date: 20221027
  Serious: Yes (Disabling, Other)
  Sender: FDA-Public Use
  Company Number: GB-MHRA-VAC-202209081552568220-DMJYK

PATIENT
  Age: 82 Year
  Sex: Male

DRUGS (2)
  1. ONCOTICE [Suspect]
     Active Substance: BACILLUS CALMETTE-GUERIN SUBSTRAIN TICE LIVE ANTIGEN
     Indication: Bladder cancer
     Dosage: 1 VIAL
     Route: 043
     Dates: start: 20200304
  2. ONCOTICE [Suspect]
     Active Substance: BACILLUS CALMETTE-GUERIN SUBSTRAIN TICE LIVE ANTIGEN
     Dosage: 1 VIAL
     Route: 043
     Dates: start: 20200403

REACTIONS (1)
  - Spinal cord abscess [Recovered/Resolved with Sequelae]
